FAERS Safety Report 23628227 (Version 1)
Quarter: 2024Q1

REPORT INFORMATION
  Report Type: Spontaneous
  Country: NL (occurrence: NL)
  Receive Date: 20240313
  Receipt Date: 20240313
  Transmission Date: 20240410
  Serious: Yes (Hospitalization)
  Sender: FDA-Public Use
  Company Number: None

PATIENT
  Age: 84 Year
  Sex: Male
  Weight: 73 kg

DRUGS (2)
  1. METHOTREXATE [Suspect]
     Active Substance: METHOTREXATE
     Indication: Rheumatoid arthritis
     Dosage: 1X 12.5MG/WEEK, TABLET  2,5MG / BRAND NAME NOT SPECIFIED
     Route: 065
     Dates: start: 20100201, end: 20240122
  2. AMOXICILLIN [Concomitant]
     Active Substance: AMOXICILLIN
     Indication: Product used for unknown indication
     Dosage: 12 GRAM/24 HOUR INTRAVENEUS, INFUUS / BRAND NAME NOT SPECIFIED
     Route: 042

REACTIONS (1)
  - Listeriosis [Unknown]
